FAERS Safety Report 9993081 (Version 1)
Quarter: 2014Q1

REPORT INFORMATION
  Report Type: Report from Study
  Country: US (occurrence: US)
  Receive Date: 20140310
  Receipt Date: 20140310
  Transmission Date: 20141002
  Serious: Yes (Other)
  Sender: FDA-Public Use
  Company Number: US-ABBVIE-13P-163-1096218-00

PATIENT
  Age: 49 Year
  Sex: Female
  Weight: 56.75 kg

DRUGS (8)
  1. LUPRON DEPOT [Suspect]
     Indication: ENDOMETRIOSIS
     Dates: start: 1988
  2. LUPRON DEPOT [Suspect]
     Indication: INFERTILITY
     Dosage: SECOND COURSE
     Dates: start: 1990
  3. LUPRON DEPOT [Suspect]
     Indication: DYSMENORRHOEA
     Dates: start: 1997
  4. LUPRON DEPOT [Suspect]
     Dates: start: 201006, end: 201111
  5. LUPRON DEPOT [Suspect]
     Dates: start: 201302
  6. VITAMINS [Concomitant]
     Indication: PRODUCT USED FOR UNKNOWN INDICATION
  7. SINGULAIR [Concomitant]
     Indication: ASTHMA
  8. PRO-AIR [Concomitant]
     Indication: ASTHMA

REACTIONS (8)
  - Endometriosis [Recovered/Resolved]
  - Dysmenorrhoea [Not Recovered/Not Resolved]
  - Infertility [Unknown]
  - Hypersensitivity [Not Recovered/Not Resolved]
  - Osteopenia [Unknown]
  - Weight loss poor [Unknown]
  - Pain [Recovered/Resolved]
  - Constipation [Not Recovered/Not Resolved]
